FAERS Safety Report 8314741-7 (Version None)
Quarter: 2012Q1

REPORT INFORMATION
  Report Type: 
  Country: None (occurrence: None)
  Receive Date: 20120315
  Receipt Date: 20110401
  Transmission Date: 20120608
  Serious: Yes (Other)
  Sender: FDA-Public Use
  Company Number: PHHY2011US22215

PATIENT
  Age: 58 Year
  Sex: Male

DRUGS (2)
  1. GILENYA [Suspect]
     Indication: MULTIPLE SCLEROSIS
     Dosage: 0.5 MG, QD, ORAL
     Route: 048
     Dates: start: 20110124, end: 20110317
  2. FAMPRIDINE [Concomitant]

REACTIONS (4)
  - MACULAR OEDEMA [None]
  - COLOUR BLINDNESS ACQUIRED [None]
  - VISUAL ACUITY REDUCED [None]
  - EYE PAIN [None]
